FAERS Safety Report 20532930 (Version 1)
Quarter: 2022Q1

REPORT INFORMATION
  Report Type: Spontaneous
  Country: US (occurrence: None)
  Receive Date: 20220301
  Receipt Date: 20220301
  Transmission Date: 20220424
  Serious: Yes (Life-Threatening)
  Sender: FDA-Public Use
  Company Number: None

PATIENT
  Age: 57 Year
  Sex: Female

DRUGS (1)
  1. HIBICLENS [Suspect]
     Active Substance: CHLORHEXIDINE GLUCONATE
     Indication: Infection prophylaxis
     Route: 061
     Dates: start: 20220227, end: 20220227

REACTIONS (2)
  - Anaphylactic reaction [None]
  - Burning sensation [None]

NARRATIVE: CASE EVENT DATE: 20220227
